FAERS Safety Report 10503779 (Version 1)
Quarter: 2014Q4

REPORT INFORMATION
  Report Type: Spontaneous
  Country: US (occurrence: None)
  Receive Date: 20141006
  Receipt Date: 20141006
  Transmission Date: 20150528
  Serious: Yes (Hospitalization)
  Sender: FDA-Public Use
  Company Number: 2014AP004864

PATIENT
  Age: 34 Year
  Sex: Female
  Weight: 54 kg

DRUGS (6)
  1. BENADRYL /00000402/ (DIPHENHYDRAMINE HYDROCHLORIDE) [Concomitant]
  2. FERRIPROX [Suspect]
     Active Substance: DEFERIPRONE
     Indication: SICKLE CELL ANAEMIA
     Route: 048
     Dates: start: 20140422
  3. DIGOXIN (DIGOXIN) [Concomitant]
     Active Substance: DIGOXIN
  4. FERRIPROX [Suspect]
     Active Substance: DEFERIPRONE
     Indication: HAEMOCHROMATOSIS
     Route: 048
     Dates: start: 20140422
  5. MAGNESIUM (MAGNESIUM) [Concomitant]
     Active Substance: MAGNESIUM
  6. DILAUDID [Concomitant]
     Active Substance: HYDROMORPHONE HYDROCHLORIDE

REACTIONS (3)
  - Abdominal discomfort [None]
  - Sickle cell anaemia with crisis [None]
  - Vomiting [None]

NARRATIVE: CASE EVENT DATE: 20140908
